FAERS Safety Report 9178396 (Version 2)
Quarter: 2013Q2

REPORT INFORMATION
  Report Type: Spontaneous
  Country: DK (occurrence: SE)
  Receive Date: 20130321
  Receipt Date: 20130405
  Transmission Date: 20140414
  Serious: Yes (Hospitalization, Other)
  Sender: FDA-Public Use
  Company Number: SE-FRI-1000043576

PATIENT
  Sex: Female

DRUGS (5)
  1. ESCITALOPRAM [Suspect]
     Dosage: 5-6 DAILY DOSES
  2. ALVEDON [Suspect]
     Dosage: SOME TABLETS
  3. LAMOTRIGINE [Suspect]
     Dosage: 5-6 DAILY DOSES
  4. ZOPIKLON [Suspect]
     Dosage: 5-6 DAILY DOSES
  5. VOXRA [Suspect]
     Dosage: 5-6 DAILY DOSES

REACTIONS (4)
  - Muscle contractions involuntary [Unknown]
  - Fatigue [Unknown]
  - Suicide attempt [Unknown]
  - Overdose [Unknown]
